FAERS Safety Report 21121215 (Version 3)
Quarter: 2024Q2

REPORT INFORMATION
  Report Type: Spontaneous
  Country: US (occurrence: US)
  Receive Date: 20220722
  Receipt Date: 20240401
  Transmission Date: 20240716
  Serious: No
  Sender: FDA-Public Use
  Company Number: US-PFIZER INC-PV202200027204

PATIENT
  Age: 79 Year
  Sex: Male

DRUGS (3)
  1. MEKTOVI [Suspect]
     Active Substance: BINIMETINIB
     Dosage: 15 MG
  2. BRAFTOVI [Suspect]
     Active Substance: ENCORAFENIB
     Dosage: 75 MG
  3. BRAFTOVI [Suspect]
     Active Substance: ENCORAFENIB
     Dosage: 300 MG, DAILY, [SIG: TAKE 4 CAPSULES (300 MG TOTAL) BY MOUTH DAILY]
     Route: 048
     Dates: start: 20220630

REACTIONS (2)
  - Neoplasm progression [Unknown]
  - Eye disorder [Unknown]
